FAERS Safety Report 20163103 (Version 2)
Quarter: 2021Q4

REPORT INFORMATION
  Report Type: Spontaneous
  Country: FR (occurrence: FR)
  Receive Date: 20211209
  Receipt Date: 20211213
  Transmission Date: 20220303
  Serious: Yes (Life-Threatening)
  Sender: FDA-Public Use
  Company Number: FR-UCBSA-2021056267

PATIENT
  Sex: Male

DRUGS (4)
  1. KEPPRA [Suspect]
     Active Substance: LEVETIRACETAM
     Indication: Product used for unknown indication
     Dosage: 2GRAM PER DAY
  2. KEPPRA [Suspect]
     Active Substance: LEVETIRACETAM
     Dosage: 1GRAMX3
     Dates: start: 2021
  3. KEPPRA [Suspect]
     Active Substance: LEVETIRACETAM
     Dosage: 1500MG
     Dates: start: 2021
  4. KEPPRA [Suspect]
     Active Substance: LEVETIRACETAM
     Dosage: 1.125 GRAM, 2X/DAY (BID)
     Dates: start: 2021

REACTIONS (4)
  - Coma [Unknown]
  - Toxicity to various agents [Unknown]
  - Drug level fluctuating [Unknown]
  - Treatment noncompliance [Unknown]

NARRATIVE: CASE EVENT DATE: 20211101
